FAERS Safety Report 25635914 (Version 1)
Quarter: 2025Q3

REPORT INFORMATION
  Report Type: Spontaneous
  Country: GB (occurrence: GB)
  Receive Date: 20250802
  Receipt Date: 20250802
  Transmission Date: 20251020
  Serious: Yes (Hospitalization, Other)
  Sender: AUROBINDO
  Company Number: GB-MHRA-EMIS-5976-03faa492-293e-452c-9758-f3d97af18aac

PATIENT
  Sex: Female
  Weight: 62 kg

DRUGS (6)
  1. NITROFURANTOIN [Suspect]
     Active Substance: NITROFURANTOIN
     Indication: Product used for unknown indication
     Dosage: 1 DOSAGE FORM, TWO TIMES A DAY [ONE TO BE TAKEN TWICE A DAY ]
     Route: 065
     Dates: start: 20250324, end: 20250422
  2. LACTULOSE [Concomitant]
     Active Substance: LACTULOSE
     Indication: Product used for unknown indication
     Dosage: 500 MILLILITER, TWO TIMES A DAY [TWO OR THREE 5ML SPOONFULS TO BE TAKEN TWICE A DAY]
     Route: 065
     Dates: start: 20250207, end: 20250319
  3. DIBUCAINE HYDROCHLORIDE\PREDNISOLONE [Concomitant]
     Active Substance: DIBUCAINE HYDROCHLORIDE\PREDNISOLONE
     Indication: Product used for unknown indication
     Dosage: 30 GRAM, TWO TIMES A DAY [APPLY TWICE A DAY FOR 5-7 DAYS]
     Route: 065
     Dates: start: 20250207, end: 20250322
  4. TRIMETHOPRIM [Concomitant]
     Active Substance: TRIMETHOPRIM
     Indication: Urinary tract infection
     Dosage: UNK, ONCE A DAY [ONE TO BE TAKEN AT NIGHT TO PREVENT UTI]
     Route: 065
     Dates: start: 20250324
  5. CLOTRIMAZOLE\HYDROCORTISONE [Concomitant]
     Active Substance: CLOTRIMAZOLE\HYDROCORTISONE
     Indication: Product used for unknown indication
     Route: 065
     Dates: start: 20250324
  6. MINERAL OIL\PARAFFIN [Concomitant]
     Active Substance: MINERAL OIL\PARAFFIN
     Indication: Product used for unknown indication
     Route: 065
     Dates: start: 20250324

REACTIONS (4)
  - Cholestasis [Recovering/Resolving]
  - Urinary tract infection [Unknown]
  - Drug-induced liver injury [Unknown]
  - Autoimmune hepatitis [Unknown]

NARRATIVE: CASE EVENT DATE: 20250311
